FAERS Safety Report 14413997 (Version 1)
Quarter: 2018Q1

REPORT INFORMATION
  Report Type: Spontaneous
  Country: DE (occurrence: DE)
  Receive Date: 20180119
  Receipt Date: 20180119
  Transmission Date: 20180509
  Serious: Yes (Death)
  Sender: FDA-Public Use
  Company Number: DE-ROCHE-2055782

PATIENT
  Age: 70 Year
  Sex: Female
  Weight: 64 kg

DRUGS (7)
  1. FOLINIC ACID [Suspect]
     Active Substance: LEUCOVORIN
     Indication: COLON CANCER METASTATIC
  2. 5-FLUOROURACIL [Suspect]
     Active Substance: FLUOROURACIL
     Indication: COLON CANCER METASTATIC
     Dosage: CUMULATIVE DOSE WAS 42000 MG/M2
     Route: 042
     Dates: start: 20170331, end: 20171103
  3. AXIPLATIN [Suspect]
     Active Substance: OXALIPLATIN
     Indication: COLON CANCER METASTATIC
  4. FOLINIC ACID [Suspect]
     Active Substance: LEUCOVORIN
     Indication: METASTASES TO PERITONEUM
     Dosage: CUMULATIVE DOSE WAS 10500 MG/M2
     Route: 042
     Dates: start: 20170331, end: 20171103
  5. AXIPLATIN [Suspect]
     Active Substance: OXALIPLATIN
     Indication: METASTASES TO PERITONEUM
     Dosage: CUMULATIVE DOSE WAS 1000 MG/M2
     Route: 042
     Dates: start: 20170331, end: 20171103
  6. BEVACIZUMAB. [Suspect]
     Active Substance: BEVACIZUMAB
     Indication: PRODUCT USED FOR UNKNOWN INDICATION
     Dosage: CUMULATIVE DOSE WAS 35 MG/KG
     Route: 042
     Dates: start: 20170527, end: 20171103
  7. 5-FLUOROURACIL [Suspect]
     Active Substance: FLUOROURACIL
     Indication: METASTASES TO PERITONEUM

REACTIONS (1)
  - Neoplasm malignant [Fatal]
